FAERS Safety Report 7936235-0 (Version None)
Quarter: 2011Q4

REPORT INFORMATION
  Report Type: 
  Country: None (occurrence: None)
  Receive Date: 20111123
  Receipt Date: 20111118
  Transmission Date: 20120403
  Serious: Yes (Hospitalization)
  Sender: FDA-Public Use
  Company Number: FR-PFIZER INC-2011282505

PATIENT
  Age: 28 Year
  Sex: Female

DRUGS (5)
  1. ROCEPHIN [Suspect]
     Dosage: 2 MG TWICE/DAY
     Dates: start: 20111006, end: 20111007
  2. LEVOFLOXACIN [Suspect]
     Dosage: UNK
     Dates: start: 20111005, end: 20111007
  3. DIANE-35 [Concomitant]
  4. FLAGYL [Suspect]
     Dosage: 500 MG, 3X/DAY
     Dates: start: 20111005, end: 20111007
  5. PIPERACILLIN AND TAZOBACTAM [Suspect]
     Dosage: UNK
     Dates: start: 20111005, end: 20111006

REACTIONS (2)
  - THROMBOCYTOPENIA [None]
  - APLASIA PURE RED CELL [None]
